FAERS Safety Report 10793761 (Version 1)
Quarter: 2015Q1

REPORT INFORMATION
  Report Type: Spontaneous
  Country: US (occurrence: US)
  Receive Date: 20150213
  Receipt Date: 20150213
  Transmission Date: 20150721
  Serious: Yes (Hospitalization)
  Sender: FDA-Public Use
  Company Number: US-ASTRAZENECA-2015SE13613

PATIENT
  Sex: Male

DRUGS (2)
  1. SYMBICORT [Suspect]
     Active Substance: BUDESONIDE\FORMOTEROL FUMARATE DIHYDRATE
     Indication: ASTHMA
     Dosage: 1604.5 MCG, TWO TIMES A DAY
     Route: 055
     Dates: end: 20150130
  2. LISINOPRIL. [Suspect]
     Active Substance: LISINOPRIL
     Indication: HYPERTENSION
     Route: 048

REACTIONS (7)
  - Hyperaesthesia [Unknown]
  - Glossodynia [Unknown]
  - Tremor [Unknown]
  - Oropharyngeal pain [Unknown]
  - Pyrexia [Unknown]
  - Speech disorder [Unknown]
  - Headache [Unknown]
